FAERS Safety Report 9002607 (Version 3)
Quarter: 2013Q2

REPORT INFORMATION
  Report Type: Report from Study
  Country: SK (occurrence: SK)
  Receive Date: 20130107
  Receipt Date: 20130621
  Transmission Date: 20140414
  Serious: Yes (Hospitalization)
  Sender: FDA-Public Use
  Company Number: SK-ASTELLAS-2012EU011495

PATIENT
  Age: 55 Year
  Sex: Female
  Weight: 110 kg

DRUGS (5)
  1. SOLIFENACIN [Suspect]
     Indication: HYPERTONIC BLADDER
     Dosage: 5 MG, UID/QD
     Route: 048
     Dates: start: 20121214, end: 20121223
  2. RUPAFIN [Concomitant]
     Indication: SEASONAL ALLERGY
     Dosage: 10 MG, UID/QD
     Route: 048
     Dates: start: 2010, end: 201212
  3. ACCUZIDE [Concomitant]
     Indication: HYPERTENSION
     Dosage: 12.50 MG, UID/QD
     Route: 048
     Dates: start: 201212
  4. ACCUZIDE [Concomitant]
     Dosage: 10 MG, UID/QD
     Route: 048
     Dates: start: 201212
  5. DASSELTA [Concomitant]
     Indication: SEASONAL ALLERGY
     Dosage: 5 MG, UID/QD
     Route: 048
     Dates: start: 201212

REACTIONS (1)
  - Subarachnoid haemorrhage [Recovered/Resolved]
